FAERS Safety Report 11671821 (Version 1)
Quarter: 2015Q4

REPORT INFORMATION
  Report Type: Report from Study
  Country: US (occurrence: US)
  Receive Date: 20151028
  Receipt Date: 20151028
  Transmission Date: 20160304
  Serious: No
  Sender: FDA-Public Use
  Company Number: PHEH2014US023187

PATIENT
  Sex: Female

DRUGS (1)
  1. MYFORTIC [Suspect]
     Active Substance: MYCOPHENOLATE SODIUM
     Indication: COMPLICATIONS OF TRANSPLANTED KIDNEY
     Dosage: 360 MG, TWICE A DAY
     Route: 048

REACTIONS (1)
  - Sinusitis [Unknown]
